FAERS Safety Report 4815630-2 (Version None)
Quarter: 2005Q4

REPORT INFORMATION
  Report Type: 
  Country: None (occurrence: None)
  Receive Date: 20051027
  Receipt Date: 20051014
  Transmission Date: 20060501
  Serious: Yes (Hospitalization)
  Sender: FDA-Public Use
  Company Number: 2005138904

PATIENT
  Age: 74 Year
  Sex: Male
  Weight: 64 kg

DRUGS (16)
  1. VFEND [Suspect]
     Indication: PNEUMONIA ASPERGILLUS
     Dosage: 400 MG (BID), ORAL
     Route: 048
     Dates: start: 20051004
  2. SPELEAR (FUDOSTEINE) [Concomitant]
  3. UNIPHYL [Concomitant]
  4. FOIPAN (CAMOSTAT MESILATE) [Concomitant]
  5. FAMOTIDINE [Concomitant]
  6. ALPRAZOLAM [Concomitant]
  7. DOGMATYL (SULPIRIDE) [Concomitant]
  8. LENDORM [Concomitant]
  9. HOKUNALIN (TULOABUTEROL HYDROCHLORIDE) [Concomitant]
  10. ASPIRIN [Concomitant]
  11. CASODEX [Concomitant]
  12. EVIPROSTAT (CHIMAPHILA UMEBLLATA, EQUISETUM ARVENSE, MANGANESE CHLORID [Concomitant]
  13. MEXITIL (MEXIFETINE HYDROCHLORIDE) [Concomitant]
  14. SPIRIVA [Concomitant]
  15. BUP-4 (PROPIVERINE HYDROCHLORIDE) (PROPIVERINE HYDROCHLORIDE) [Concomitant]
  16. HARNAL (TAMSULOSIN HYDROCHLORIDE) (TAMSULOSIN HYDROCHLORIDE) [Concomitant]

REACTIONS (12)
  - BLOOD GLUCOSE INCREASED [None]
  - BLOOD PRESSURE DIASTOLIC DECREASED [None]
  - BLOOD PRESSURE SYSTOLIC DECREASED [None]
  - BRACHIAL PULSE DECREASED [None]
  - CEREBRAL INFARCTION [None]
  - CYANOSIS [None]
  - DEPRESSED LEVEL OF CONSCIOUSNESS [None]
  - GENERAL PHYSICAL CONDITION ABNORMAL [None]
  - HEART RATE DECREASED [None]
  - METABOLIC ACIDOSIS [None]
  - OXYGEN SATURATION IMMEASURABLE [None]
  - SYNCOPE VASOVAGAL [None]
